FAERS Safety Report 21128652 (Version 2)
Quarter: 2022Q3

REPORT INFORMATION
  Report Type: Spontaneous
  Country: US (occurrence: US)
  Receive Date: 20220725
  Receipt Date: 20220826
  Transmission Date: 20221027
  Serious: Yes (Death, Disabling, Other)
  Sender: FDA-Public Use
  Company Number: US-SA-SAC20220721002390

PATIENT
  Age: 64 Year
  Sex: Male

DRUGS (1)
  1. ZANTAC [Suspect]
     Active Substance: RANITIDINE HYDROCHLORIDE
     Indication: Dyspepsia
     Dosage: 75 MG, OCCASIONAL
     Route: 048
     Dates: start: 201701, end: 201807

REACTIONS (7)
  - Prostate cancer [Fatal]
  - Disability [Unknown]
  - Pain [Unknown]
  - Anhedonia [Unknown]
  - Anxiety [Unknown]
  - Deformity [Unknown]
  - Injury [Unknown]

NARRATIVE: CASE EVENT DATE: 20180701
